FAERS Safety Report 7681065-0 (Version None)
Quarter: 2011Q3

REPORT INFORMATION
  Report Type: 
  Country: None (occurrence: None)
  Receive Date: 20110812
  Receipt Date: 20110808
  Transmission Date: 20111222
  Serious: Yes (Death, Life-Threatening, Hospitalization, Other)
  Sender: FDA-Public Use
  Company Number: US-B.I. PHARMACEUTICALS,INC./RIDGEFIELD-2011-BP-19389BP

PATIENT
  Sex: Male

DRUGS (1)
  1. PRADAXA [Suspect]
     Dates: start: 20110201

REACTIONS (6)
  - HAEMORRHAGE [None]
  - INTESTINAL ISCHAEMIA [None]
  - ISCHAEMIA [None]
  - GASTROINTESTINAL NECROSIS [None]
  - SEPSIS [None]
  - BLOOD PRESSURE DECREASED [None]
